FAERS Safety Report 8379434-9 (Version None)
Quarter: 2012Q2

REPORT INFORMATION
  Report Type: 
  Country: None (occurrence: None)
  Receive Date: 20120523
  Receipt Date: 20120509
  Transmission Date: 20120825
  Serious: Yes (Other)
  Sender: FDA-Public Use
  Company Number: GB-MYLANLABS-2012S1002555

PATIENT
  Age: 27 Month
  Sex: Male

DRUGS (3)
  1. MELPHALAN HYDROCHLORIDE [Suspect]
     Indication: RETINOBLASTOMA
     Dosage: 2 X 5MG DOSES, GIVEN 4 WEEKS APART AS 30-MIN INTRA-OPHTHALMIC ARTERIAL INFUSIONS
     Route: 013
  2. HEPARIN [Concomitant]
     Indication: ANTICOAGULANT THERAPY
     Route: 013
  3. ANESTHETICS, GENERAL [Concomitant]
     Indication: RETINOBLASTOMA BILATERAL

REACTIONS (1)
  - VITREOUS HAEMORRHAGE [None]
